FAERS Safety Report 5822809-X (Version None)
Quarter: 2008Q3

REPORT INFORMATION
  Report Type: 
  Country: None (occurrence: None)
  Receive Date: 20080725
  Receipt Date: 20080722
  Transmission Date: 20090109
  Serious: Yes (Hospitalization)
  Sender: FDA-Public Use
  Company Number: US-BRISTOL-MYERS SQUIBB COMPANY-14247464

PATIENT
  Age: 81 Year
  Sex: Female
  Weight: 74 kg

DRUGS (7)
  1. IXEMPRA KIT [Suspect]
     Indication: BREAST CANCER STAGE IV
     Dosage: 30-JUN-2008 AND 2 ADDITIONAL CYCLES RECEIVED.
     Route: 042
     Dates: start: 20080515, end: 20080515
  2. ZOFRAN [Suspect]
  3. DECADRON [Suspect]
  4. PEPCID [Suspect]
     Indication: PREMEDICATION
  5. BENADRYL [Suspect]
     Indication: PREMEDICATION
  6. ATENOLOL [Concomitant]
  7. NORVASC [Concomitant]

REACTIONS (2)
  - RENAL FAILURE ACUTE [None]
  - TUMOUR LYSIS SYNDROME [None]
